FAERS Safety Report 7834676-3 (Version None)
Quarter: 2011Q4

REPORT INFORMATION
  Report Type: 
  Country: None (occurrence: None)
  Receive Date: 20111024
  Receipt Date: 20111021
  Transmission Date: 20120403
  Serious: Yes (Hospitalization)
  Sender: FDA-Public Use
  Company Number: BE-ABBOTT-11P-013-0855170-00

PATIENT
  Sex: Male

DRUGS (3)
  1. METARELAX [Concomitant]
     Indication: PRODUCT USED FOR UNKNOWN INDICATION
  2. LORAZEPAM [Concomitant]
     Indication: PRODUCT USED FOR UNKNOWN INDICATION
  3. HUMIRA [Suspect]
     Indication: ANKYLOSING SPONDYLITIS
     Dates: start: 20090101

REACTIONS (1)
  - STRESS [None]
